FAERS Safety Report 13084035 (Version 1)
Quarter: 2017Q1

REPORT INFORMATION
  Report Type: Spontaneous
  Country: US (occurrence: US)
  Receive Date: 20170104
  Receipt Date: 20170104
  Transmission Date: 20170428
  Serious: Yes (Hospitalization)
  Sender: FDA-Public Use
  Company Number: US-ASTELLAS-2016US051288

PATIENT
  Age: 65 Year
  Sex: Female

DRUGS (4)
  1. TACROLIMUS. [Suspect]
     Active Substance: TACROLIMUS
     Indication: PROPHYLAXIS AGAINST TRANSPLANT REJECTION
     Route: 065
  2. LEFLUNOMIDE. [Concomitant]
     Active Substance: LEFLUNOMIDE
     Indication: PROPHYLAXIS AGAINST TRANSPLANT REJECTION
     Route: 065
  3. PREDNISONE. [Concomitant]
     Active Substance: PREDNISONE
     Indication: PROPHYLAXIS AGAINST TRANSPLANT REJECTION
     Route: 065
  4. MICAFUNGIN [Suspect]
     Active Substance: MICAFUNGIN
     Indication: ENDOPHTHALMITIS
     Route: 042

REACTIONS (9)
  - Endophthalmitis [Recovering/Resolving]
  - Drug ineffective [Unknown]
  - Fungaemia [Unknown]
  - Abdominal pain upper [Unknown]
  - Pulmonary mass [Unknown]
  - Pleural effusion [Unknown]
  - Infectious pleural effusion [Unknown]
  - Hypoxia [Unknown]
  - Off label use [Unknown]
